FAERS Safety Report 11273405 (Version 1)
Quarter: 2015Q3

REPORT INFORMATION
  Report Type: Spontaneous
  Country: JP (occurrence: JP)
  Receive Date: 20150715
  Receipt Date: 20150715
  Transmission Date: 20151125
  Serious: Yes (Other)
  Sender: FDA-Public Use
  Company Number: JP-PFIZER INC-2015229849

PATIENT
  Age: 79 Year
  Sex: Male

DRUGS (1)
  1. TORISEL [Suspect]
     Active Substance: TEMSIROLIMUS
     Indication: RENAL CELL CARCINOMA
     Dosage: 25 MG, WEEKLY
     Route: 041
     Dates: start: 201006, end: 201008

REACTIONS (7)
  - Dysgeusia [Recovered/Resolved]
  - Platelet count decreased [Recovered/Resolved]
  - Erythema multiforme [Recovered/Resolved]
  - Stomatitis [Recovered/Resolved]
  - Diarrhoea [Recovered/Resolved]
  - Diarrhoea [Recovered/Resolved]
  - Platelet count decreased [Recovered/Resolved]

NARRATIVE: CASE EVENT DATE: 2010
